FAERS Safety Report 4657003-1 (Version None)
Quarter: 2005Q2

REPORT INFORMATION
  Report Type: 
  Country: None (occurrence: None)
  Receive Date: 20050506
  Receipt Date: 20050422
  Transmission Date: 20051028
  Serious: Yes (Hospitalization)
  Sender: FDA-Public Use
  Company Number: L05-USA-01563-06

PATIENT
  Age: 61 Year
  Sex: Male

DRUGS (4)
  1. DILTIAZEM [Suspect]
     Dosage: 300 MG QD
  2. NADOLOL [Suspect]
     Dosage: 40 MG QD
  3. IRBESARTAN [Suspect]
     Dosage: 300 MG QD
  4. HYDROCHLOROTHIAZIDE [Suspect]
     Dosage: 12.5 MG QD

REACTIONS (10)
  - ARRHYTHMIA [None]
  - BLOOD PRESSURE DECREASED [None]
  - DISORIENTATION [None]
  - ELECTROCARDIOGRAM QRS COMPLEX SHORTENED [None]
  - HAEMATOCRIT DECREASED [None]
  - HAEMOGLOBIN DECREASED [None]
  - LETHARGY [None]
  - NODAL ARRHYTHMIA [None]
  - SINOATRIAL BLOCK [None]
  - SINUS ARREST [None]
